FAERS Safety Report 5299426-6 (Version None)
Quarter: 2007Q2

REPORT INFORMATION
  Report Type: 
  Country: None (occurrence: None)
  Receive Date: 20070417
  Receipt Date: 20070404
  Transmission Date: 20071010
  Serious: Yes (Death)
  Sender: FDA-Public Use
  Company Number: GR-GENENTECH-239334

PATIENT
  Sex: Female

DRUGS (2)
  1. TRASTUZUMAB [Suspect]
  2. LAPATINIB [Suspect]
     Indication: BREAST CANCER METASTATIC
     Dosage: 1000 MG, QD
     Route: 048
     Dates: start: 20061114, end: 20061206

REACTIONS (2)
  - DEATH [None]
  - EJECTION FRACTION DECREASED [None]
